FAERS Safety Report 23969243 (Version 2)
Quarter: 2024Q3

REPORT INFORMATION
  Report Type: Spontaneous
  Country: DK (occurrence: DK)
  Receive Date: 20240612
  Receipt Date: 20240827
  Transmission Date: 20241016
  Serious: Yes (Other)
  Sender: ASTELLAS
  Company Number: DK-ASTELLAS-2024US016405

PATIENT
  Age: 67 Year
  Sex: Female

DRUGS (1)
  1. VEOZAH [Suspect]
     Active Substance: FEZOLINETANT
     Indication: Hot flush
     Dosage: 1 TABLET PER DAY IN THE EVENING ONLY MEDICINE TAKEN
     Route: 048
     Dates: start: 20240415, end: 20240523

REACTIONS (4)
  - Alanine aminotransferase increased [Recovered/Resolved]
  - Discomfort [Recovered/Resolved]
  - Product use issue [Unknown]
  - Off label use [Unknown]

NARRATIVE: CASE EVENT DATE: 20240415
